FAERS Safety Report 4354501-5 (Version None)
Quarter: 2004Q2

REPORT INFORMATION
  Report Type: 
  Country: None (occurrence: None)
  Receive Date: 20040503
  Receipt Date: 20040422
  Transmission Date: 20050107
  Serious: Yes (Other)
  Sender: FDA-Public Use
  Company Number: DSA_60389_2004

PATIENT
  Age: 61 Year
  Sex: Male
  Weight: 96.1626 kg

DRUGS (6)
  1. MYSOLINE [Suspect]
     Indication: PETIT MAL EPILEPSY
     Dosage: 250 MG 5XD PO
     Route: 048
     Dates: start: 19680101
  2. LEVITRA [Suspect]
     Indication: ERECTILE DYSFUNCTION
     Dosage: 20 MG DAILY PO
     Route: 048
  3. LOMOTIL [Concomitant]
  4. GUAIFENESIN WITH DESCONGESTANT [Concomitant]
  5. CAFFEINE [Concomitant]
  6. ASPIRIN [Concomitant]

REACTIONS (5)
  - BRAIN NEOPLASM [None]
  - CONVULSION [None]
  - DIARRHOEA [None]
  - FALL [None]
  - HEAD INJURY [None]
